FAERS Safety Report 8841231 (Version 4)
Quarter: 2013Q1

REPORT INFORMATION
  Report Type: Report from Study
  Country: SE (occurrence: SE)
  Receive Date: 20121015
  Receipt Date: 20130318
  Transmission Date: 20140127
  Serious: Yes (Hospitalization)
  Sender: FDA-Public Use
  Company Number: SE-AMGEN-SWECT2012054776

PATIENT
  Age: 77 Year
  Sex: Female

DRUGS (3)
  1. DENOSUMAB [Suspect]
     Indication: OSTEOPOROSIS POSTMENOPAUSAL
     Dosage: 1 ML, Q6MO
     Route: 058
     Dates: start: 20080508
  2. TROMBYL [Concomitant]
     Dosage: 75 MG, QD
     Route: 048
     Dates: start: 20081106
  3. IBUPROFEN [Concomitant]
     Dosage: 400 MG, QD
     Route: 048
     Dates: start: 20120409

REACTIONS (1)
  - Pubis fracture [Recovered/Resolved]
